FAERS Safety Report 23854056 (Version 2)
Quarter: 2024Q2

REPORT INFORMATION
  Report Type: Other
  Country: US (occurrence: None)
  Receive Date: 20240514
  Receipt Date: 20240603
  Transmission Date: 20240716
  Serious: Yes (Hospitalization, Other)
  Sender: FDA-Public Use
  Company Number: US-ROCHE-3562811

PATIENT
  Age: 69 Year
  Sex: Male

DRUGS (2)
  1. ROZLYTREK [Suspect]
     Active Substance: ENTRECTINIB
     Indication: Lung neoplasm malignant
     Route: 048
  2. ROZLYTREK [Suspect]
     Active Substance: ENTRECTINIB
     Indication: Metastases to central nervous system

REACTIONS (4)
  - Neoplasm malignant [Unknown]
  - Hypoacusis [Unknown]
  - Pneumonia [Unknown]
  - Dyspnoea [Unknown]
